FAERS Safety Report 16677170 (Version 1)
Quarter: 2019Q3

REPORT INFORMATION
  Report Type: Spontaneous
  Country: AU (occurrence: AU)
  Receive Date: 20190807
  Receipt Date: 20190807
  Transmission Date: 20191004
  Serious: Yes (Disabling, Other)
  Sender: FDA-Public Use
  Company Number: AU-JNJFOC-20190805151

PATIENT
  Age: 18 Year
  Sex: Female

DRUGS (1)
  1. PALIPERIDONE. [Suspect]
     Active Substance: PALIPERIDONE
     Indication: PRODUCT USED FOR UNKNOWN INDICATION
     Route: 048

REACTIONS (3)
  - Wrong technique in product usage process [Unknown]
  - Off label use [Unknown]
  - Disability [Unknown]
